FAERS Safety Report 5481598-1 (Version None)
Quarter: 2007Q4

REPORT INFORMATION
  Report Type: 
  Country: None (occurrence: None)
  Receive Date: 20071004
  Receipt Date: 20070918
  Transmission Date: 20080405
  Serious: Yes (Hospitalization)
  Sender: FDA-Public Use
  Company Number: 20070241 /

PATIENT
  Age: 9 Year
  Sex: Male

DRUGS (1)
  1. VENOFER [Suspect]

REACTIONS (1)
  - PULMONARY EMBOLISM [None]
